FAERS Safety Report 10044674 (Version 1)
Quarter: 2014Q1

REPORT INFORMATION
  Report Type: Spontaneous
  Country: NO (occurrence: None)
  Receive Date: 20140326
  Receipt Date: 20140326
  Transmission Date: 20141002
  Serious: Yes (Hospitalization)
  Sender: FDA-Public Use
  Company Number: FK201400922

PATIENT
  Age: 57 Year
  Sex: Female

DRUGS (2)
  1. OXALIPLATIN 5MG/ML CONCENTRATE FOR SOLUTION FOR INFUSION (OXALIPLATIN) (OXALIPLATIN)? [Suspect]
     Indication: SMALL INTESTINE CARCINOMA
     Route: 041
     Dates: start: 20130311
  2. FLUOROURACIL HOSPIRA (FLUOROURACIL) (FLUOROURACIL) [Suspect]
     Indication: SMALL INTESTINE CARCINOMA
     Route: 041
     Dates: start: 20130311

REACTIONS (4)
  - Ascites [None]
  - Hepatic cirrhosis [None]
  - Portal hypertension [None]
  - Varices oesophageal [None]
